FAERS Safety Report 7388024-6 (Version None)
Quarter: 2011Q1

REPORT INFORMATION
  Report Type: 
  Country: None (occurrence: None)
  Receive Date: 20110322
  Receipt Date: 20110311
  Transmission Date: 20110831
  Serious: Yes (Other)
  Sender: FDA-Public Use
  Company Number: 855571

PATIENT
  Age: 56 Year
  Sex: Female
  Weight: 66.3 kg

DRUGS (7)
  1. CARBOPLATIN [Suspect]
     Indication: OVARIAN CANCER RECURRENT
     Dosage: 504 MG, EVERY 3 WEEKS, INTRAVENOUS (NOT OTHERWISE SPECIFIED)
     Route: 042
     Dates: start: 20110310
  2. LORAZEPAM [Concomitant]
  3. DECARON /00016001/ [Concomitant]
  4. ZOFRAN [Concomitant]
  5. BENADRYL [Concomitant]
  6. RANITIDINE [Concomitant]
  7. PACLITAXEL [Concomitant]

REACTIONS (7)
  - THROAT TIGHTNESS [None]
  - NAUSEA [None]
  - DYSPNOEA [None]
  - ABDOMINAL PAIN UPPER [None]
  - FEELING ABNORMAL [None]
  - HEART RATE INCREASED [None]
  - FLUSHING [None]
